FAERS Safety Report 23378351 (Version 3)
Quarter: 2024Q2

REPORT INFORMATION
  Report Type: Spontaneous
  Country: CZ (occurrence: CZ)
  Receive Date: 20240108
  Receipt Date: 20240416
  Transmission Date: 20240716
  Serious: Yes (Other)
  Sender: FDA-Public Use
  Company Number: CZ-OTSUKA-2023_032546

PATIENT
  Age: 44 Year
  Sex: Female

DRUGS (10)
  1. CLOZAPINE [Interacting]
     Active Substance: CLOZAPINE
     Indication: Schizophrenia
     Dosage: 150 MILLIGRAM, QD
     Route: 065
  2. ARIPIPRAZOLE [Interacting]
     Active Substance: ARIPIPRAZOLE
     Indication: Schizophrenia
     Dosage: 30 MILLIGRAM, QD
     Route: 048
  3. ARIPIPRAZOLE [Interacting]
     Active Substance: ARIPIPRAZOLE
     Dosage: 15 MILLIGRAM, QD
     Route: 048
  4. ARIPIPRAZOLE [Interacting]
     Active Substance: ARIPIPRAZOLE
     Dosage: 15 MILLIGRAM, QD (ONCE A DAY  )
     Route: 048
  5. QUETIAPINE [Interacting]
     Active Substance: QUETIAPINE
     Indication: Schizophrenia
     Dosage: 200 MILLIGRAM, QD 200 MG, QD (AFTER 0-0-1)
     Route: 065
  6. QUETIAPINE [Interacting]
     Active Substance: QUETIAPINE
     Dosage: 400 MILLIGRAM, QD INCREASED TO 400 MG DAILY
     Route: 065
  7. RISPERIDONE [Interacting]
     Active Substance: RISPERIDONE
     Indication: Schizophrenia
     Dosage: 5 MILLIGRAM, QD DAILY DOSE OF 5 MG
     Route: 065
  8. HALOPERIDOL [Interacting]
     Active Substance: HALOPERIDOL
     Indication: Schizophrenia
     Dosage: UNK
     Route: 048
  9. BIPERIDEN [Interacting]
     Active Substance: BIPERIDEN
     Indication: Schizophrenia
     Dosage: UNK, Q2W 1 AMP EVERY 14 DAYS
     Route: 030
  10. ZUCLOPENTHIXOL [Interacting]
     Active Substance: ZUCLOPENTHIXOL
     Indication: Schizophrenia
     Dosage: 1 AMP EVERY 14 DAYS, Q2W
     Route: 030

REACTIONS (7)
  - Hallucination, auditory [Recovered/Resolved]
  - Fatigue [Recovered/Resolved]
  - Asthenia [Recovered/Resolved]
  - CYP2D6 polymorphism [Unknown]
  - CYP2C19 polymorphism [Unknown]
  - Drug interaction [Unknown]
  - Adverse event [Unknown]
